FAERS Safety Report 16323990 (Version 1)
Quarter: 2019Q2

REPORT INFORMATION
  Report Type: Spontaneous
  Country: IE (occurrence: IE)
  Receive Date: 20190517
  Receipt Date: 20190517
  Transmission Date: 20190711
  Serious: Yes (Other)
  Sender: FDA-Public Use
  Company Number: IE-TEVA-2019-IE-1049519

PATIENT
  Sex: Female

DRUGS (7)
  1. RANITIDINE (GENERIC) [Concomitant]
     Indication: GASTROOESOPHAGEAL REFLUX DISEASE
  2. ONDANSETRON (G) [Concomitant]
     Indication: NAUSEA
     Route: 048
  3. CREON [Concomitant]
     Active Substance: PANCRELIPASE AMYLASE\PANCRELIPASE LIPASE\PANCRELIPASE PROTEASE
  4. ORKAMBI [Suspect]
     Active Substance: IVACAFTOR\LUMACAFTOR
     Dosage: 150MG/188MG
     Route: 048
  5. PULMOZYME 2500U/2.5ML NEBULISER SOLUTION [Concomitant]
  6. LANSOPRAZOLE (GENERIC) [Suspect]
     Active Substance: LANSOPRAZOLE
     Indication: GASTROOESOPHAGEAL REFLUX DISEASE
     Route: 065
  7. ONDANSETRON (G) [Concomitant]
     Indication: VOMITING

REACTIONS (5)
  - Discoloured vomit [Recovered/Resolved]
  - Haemoptysis [Recovered/Resolved]
  - Vomiting [Recovered/Resolved]
  - Drug interaction [Recovered/Resolved]
  - Nausea [Recovered/Resolved]
